FAERS Safety Report 6361509-7 (Version None)
Quarter: 2009Q3

REPORT INFORMATION
  Report Type: 
  Country: None (occurrence: None)
  Receive Date: 20090916
  Receipt Date: 20090916
  Transmission Date: 20100115
  Serious: Yes (Disabling)
  Sender: FDA-Public Use
  Company Number: None

PATIENT
  Age: 36 Year
  Sex: Female
  Weight: 72.5755 kg

DRUGS (2)
  1. YAZ [Suspect]
     Indication: MENORRHAGIA
     Dosage: 3MG/ 0.02MG ONCER EVERY DAY
     Dates: start: 20080127, end: 20090901
  2. YAZ [Suspect]
     Indication: PREMENSTRUAL SYNDROME
     Dosage: 3MG/ 0.02MG ONCER EVERY DAY
     Dates: start: 20080127, end: 20090901

REACTIONS (2)
  - EMOTIONAL DISTRESS [None]
  - PIGMENTATION DISORDER [None]
